FAERS Safety Report 4731188-0 (Version None)
Quarter: 2005Q3

REPORT INFORMATION
  Report Type: 
  Country: None (occurrence: None)
  Receive Date: 20050729
  Receipt Date: 20050729
  Transmission Date: 20060218
  Serious: Yes (Other)
  Sender: FDA-Public Use
  Company Number: None

PATIENT
  Sex: Male

DRUGS (3)
  1. LIDOCAINE [Suspect]
     Indication: SUNBURN
     Dosage: TOPICAL
     Route: 061
     Dates: start: 20050705, end: 20050705
  2. LEXAPRO [Concomitant]
  3. PROPECIA [Concomitant]

REACTIONS (3)
  - HYPERSENSITIVITY [None]
  - SCRATCH [None]
  - SYNCOPE [None]
